FAERS Safety Report 12885316 (Version 1)
Quarter: 2016Q4

REPORT INFORMATION
  Report Type: Report from Study
  Country: MX (occurrence: MX)
  Receive Date: 20161026
  Receipt Date: 20161026
  Transmission Date: 20170207
  Serious: Yes (Life-Threatening, Other)
  Sender: FDA-Public Use
  Company Number: MX-INCYTE CORPORATION-2016IN006728

PATIENT
  Sex: Female
  Weight: 57 kg

DRUGS (2)
  1. JAKAVI [Suspect]
     Active Substance: RUXOLITINIB
     Indication: FIBROSIS
     Dosage: 20 MG, QD
     Route: 048
  2. JAKAVI [Suspect]
     Active Substance: RUXOLITINIB
     Indication: THROMBOCYTOSIS

REACTIONS (10)
  - Yellow skin [Unknown]
  - Dizziness [Unknown]
  - Contusion [Unknown]
  - Hypertension [Not Recovered/Not Resolved]
  - Apparent death [Recovered/Resolved]
  - Asthenia [Unknown]
  - Anaemia [Not Recovered/Not Resolved]
  - Cataract [Not Recovered/Not Resolved]
  - Varicose vein [Not Recovered/Not Resolved]
  - Peripheral venous disease [Unknown]
